FAERS Safety Report 9061805 (Version 1)
Quarter: 2013Q1

REPORT INFORMATION
  Report Type: Spontaneous
  Country: CN (occurrence: CN)
  Receive Date: 20130204
  Receipt Date: 20130204
  Transmission Date: 20140127
  Serious: Yes (Other)
  Sender: FDA-Public Use
  Company Number: CN-BRISTOL-MYERS SQUIBB COMPANY-17295056

PATIENT
  Age: 23 Year
  Sex: Male

DRUGS (1)
  1. BARACLUDE [Suspect]
     Route: 048
     Dates: start: 2010

REACTIONS (2)
  - Drug ineffective [Unknown]
  - Suspected counterfeit product [Unknown]
